FAERS Safety Report 14056895 (Version 1)
Quarter: 2017Q4

REPORT INFORMATION
  Report Type: Report from Study
  Country: ZA (occurrence: ZA)
  Receive Date: 20171006
  Receipt Date: 20171006
  Transmission Date: 20180321
  Serious: Yes (Other)
  Sender: FDA-Public Use
  Company Number: ZA-BRISTOL-MYERS SQUIBB COMPANY-BMS-2017-016539

PATIENT
  Age: 78 Year
  Sex: Female

DRUGS (2)
  1. ABATACEPT [Suspect]
     Active Substance: ABATACEPT
     Indication: RHEUMATOID ARTHRITIS
     Dosage: 125 MG, QWK
     Route: 058
     Dates: start: 201611
  2. ABATACEPT [Suspect]
     Active Substance: ABATACEPT
     Indication: RHEUMATOID ARTHRITIS
     Dosage: 750 MG, QMO
     Route: 042
     Dates: start: 201405

REACTIONS (6)
  - Cellulitis [Recovering/Resolving]
  - Rheumatoid arthritis [Unknown]
  - Drug dose omission [Unknown]
  - Arthropod bite [Unknown]
  - Product storage error [Unknown]
  - Scab [Unknown]

NARRATIVE: CASE EVENT DATE: 20170215
